FAERS Safety Report 7526708-7 (Version None)
Quarter: 2011Q2

REPORT INFORMATION
  Report Type: 
  Country: None (occurrence: None)
  Receive Date: 20110606
  Receipt Date: 20110602
  Transmission Date: 20111010
  Serious: Yes (Disabling)
  Sender: FDA-Public Use
  Company Number: GB-TEVA-284573ISR

PATIENT
  Age: 75 Year
  Sex: Female

DRUGS (1)
  1. BISOPROLOL FUMARATE [Suspect]
     Indication: ACUTE MYOCARDIAL INFARCTION
     Dosage: 2.5 MILLIGRAM;
     Route: 048
     Dates: start: 20110509

REACTIONS (5)
  - LETHARGY [None]
  - MALAISE [None]
  - EXERCISE TOLERANCE DECREASED [None]
  - FATIGUE [None]
  - DYSPNOEA [None]
